FAERS Safety Report 5373965-1 (Version None)
Quarter: 2007Q2

REPORT INFORMATION
  Report Type: 
  Country: None (occurrence: None)
  Receive Date: 20070627
  Receipt Date: 20070620
  Transmission Date: 20071010
  Serious: Yes (Other)
  Sender: FDA-Public Use
  Company Number: S07-USA-02681-01

PATIENT
  Age: 42 Year
  Sex: Male
  Weight: 95.2554 kg

DRUGS (3)
  1. CELEXA [Suspect]
  2. AMBIEN [Suspect]
     Indication: INSOMNIA
     Dates: start: 20050701, end: 20050701
  3. LUNESTA [Suspect]
     Indication: INSOMNIA
     Dates: start: 20050701, end: 20050701

REACTIONS (3)
  - IMPAIRED DRIVING ABILITY [None]
  - LEGAL PROBLEM [None]
  - SLEEP WALKING [None]
